FAERS Safety Report 24815995 (Version 2)
Quarter: 2025Q1

REPORT INFORMATION
  Report Type: Spontaneous
  Country: AU (occurrence: AU)
  Receive Date: 20250107
  Receipt Date: 20250117
  Transmission Date: 20250409
  Serious: Yes (Other)
  Sender: RANBAXY
  Company Number: AU-SUN PHARMACEUTICAL INDUSTRIES LTD-2024RR-487563

PATIENT

DRUGS (1)
  1. ACETAMINOPHEN [Suspect]
     Active Substance: ACETAMINOPHEN
     Indication: Product used for unknown indication
     Route: 065

REACTIONS (9)
  - Acute hepatic failure [Unknown]
  - Overdose [Unknown]
  - Agitation [Unknown]
  - Confusional state [Unknown]
  - Ammonia decreased [Unknown]
  - Cerebral infarction [Unknown]
  - Oedema [Unknown]
  - Mass [Unknown]
  - Metabolic acidosis [Unknown]
